FAERS Safety Report 14209650 (Version 1)
Quarter: 2017Q4

REPORT INFORMATION
  Report Type: Spontaneous
  Country: US (occurrence: US)
  Receive Date: 20171121
  Receipt Date: 20171121
  Transmission Date: 20180321
  Serious: No
  Sender: FDA-Public Use
  Company Number: US-PFIZER INC-2017492341

PATIENT
  Age: 69 Year
  Sex: Female

DRUGS (1)
  1. SERTRALINE HCL [Suspect]
     Active Substance: SERTRALINE HYDROCHLORIDE
     Dosage: 25 MG, (THREE TIMES A WEEK)

REACTIONS (5)
  - Intentional product misuse [Unknown]
  - Diarrhoea [Unknown]
  - Urinary incontinence [Unknown]
  - Withdrawal syndrome [Unknown]
  - Agitation [Unknown]

NARRATIVE: CASE EVENT DATE: 201711
